FAERS Safety Report 8663051 (Version 2)
Quarter: 2013Q2

REPORT INFORMATION
  Report Type: Spontaneous
  Country: US (occurrence: US)
  Receive Date: 20120713
  Receipt Date: 20130521
  Transmission Date: 20140414
  Serious: Yes (Hospitalization, Other)
  Sender: FDA-Public Use
  Company Number: US-009507513-1207USA001385

PATIENT
  Sex: Female

DRUGS (1)
  1. SINGULAIR [Suspect]
     Dosage: 4 MG, QD
     Route: 048

REACTIONS (2)
  - Tonsillar disorder [Not Recovered/Not Resolved]
  - Convulsion [Not Recovered/Not Resolved]
